FAERS Safety Report 21782855 (Version 1)
Quarter: 2022Q4

REPORT INFORMATION
  Report Type: Other
  Country: MX (occurrence: None)
  Receive Date: 20221227
  Receipt Date: 20221227
  Transmission Date: 20230112
  Serious: Yes (Disabling, Other)
  Sender: FDA-Public Use
  Company Number: MX-ROCHE-3159029

PATIENT
  Age: 55 Year
  Sex: Female
  Weight: 71 kg

DRUGS (12)
  1. PERJETA [Suspect]
     Active Substance: PERTUZUMAB
     Indication: Breast cancer
     Dosage: PERTUZUMAB 420 MG
     Route: 042
     Dates: start: 20220523
  2. HERCEPTIN [Suspect]
     Active Substance: TRASTUZUMAB
     Indication: Breast cancer
     Dosage: DOSE WAS NOT REPORTED
     Route: 041
     Dates: start: 202208, end: 202209
  3. HERCEPTIN [Suspect]
     Active Substance: TRASTUZUMAB
     Dosage: DOSE WAS NOT REPORTED
     Route: 041
     Dates: start: 202209
  4. ONDANSETRON [Concomitant]
     Active Substance: ONDANSETRON
     Route: 065
  5. ONDANSETRON [Concomitant]
     Active Substance: ONDANSETRON
     Dosage: SINGLE DOSE
     Route: 042
  6. OMEPRAZOLE [Concomitant]
     Active Substance: OMEPRAZOLE
     Dosage: SINGLE DOSE
     Route: 042
  7. EPIRUBICIN [Concomitant]
     Active Substance: EPIRUBICIN
     Dosage: SS 250 CC P/1 HR - 4 CYCLES
  8. CYCLOPHOSPHAMIDE [Concomitant]
     Active Substance: CYCLOPHOSPHAMIDE
     Dosage: SS CC P/1 HR - 4 CYCLES
  9. FLUOROURACIL [Concomitant]
     Active Substance: FLUOROURACIL
     Dosage: SD 250 CC P/1 HR - 4 CYCLES
  10. DOCETAXEL [Concomitant]
     Active Substance: DOCETAXEL
     Dosage: 4 CYCLES
  11. FILGRASTIM [Concomitant]
     Active Substance: FILGRASTIM
     Dosage: 4 CYCLES
     Route: 065
  12. ASPIRIN [Concomitant]
     Active Substance: ASPIRIN
     Indication: Thrombosis
     Route: 048
     Dates: start: 2020

REACTIONS (22)
  - Vomiting [Recovering/Resolving]
  - Somnolence [Recovering/Resolving]
  - Peripheral coldness [Recovering/Resolving]
  - Fatigue [Recovering/Resolving]
  - Nausea [Recovering/Resolving]
  - Dizziness [Recovering/Resolving]
  - Decreased appetite [Recovered/Resolved]
  - Fatigue [Recovering/Resolving]
  - Anxiety [Recovering/Resolving]
  - Headache [Recovering/Resolving]
  - Bone pain [Recovering/Resolving]
  - Myalgia [Recovering/Resolving]
  - Myalgia [Recovering/Resolving]
  - Misophonia [Recovering/Resolving]
  - Dry mouth [Recovering/Resolving]
  - Thirst [Recovering/Resolving]
  - Dysuria [Recovering/Resolving]
  - Chromaturia [Recovering/Resolving]
  - Urinary tract disorder [Recovering/Resolving]
  - Peripheral coldness [Recovering/Resolving]
  - Metastases to liver [Recovering/Resolving]
  - Food intolerance [Recovering/Resolving]

NARRATIVE: CASE EVENT DATE: 20220801
